FAERS Safety Report 19942577 (Version 7)
Quarter: 2024Q1

REPORT INFORMATION
  Report Type: Other
  Country: JP (occurrence: JP)
  Receive Date: 20211012
  Receipt Date: 20240227
  Transmission Date: 20240410
  Serious: Yes (Life-Threatening, Hospitalization)
  Sender: FDA-Public Use
  Company Number: JP-ROCHE-2926266

PATIENT
  Age: 53 Year
  Sex: Female

DRUGS (16)
  1. ENSPRYNG [Suspect]
     Active Substance: SATRALIZUMAB-MWGE
     Indication: Prophylaxis
     Route: 058
     Dates: start: 20201105, end: 20201119
  2. ENSPRYNG [Suspect]
     Active Substance: SATRALIZUMAB-MWGE
     Indication: Neuromyelitis optica spectrum disorder
     Route: 058
     Dates: start: 20201203, end: 20210505
  3. ENSPRYNG [Suspect]
     Active Substance: SATRALIZUMAB-MWGE
     Route: 058
     Dates: start: 20210610, end: 20210712
  4. RITUXAN [Suspect]
     Active Substance: RITUXIMAB
     Indication: Prophylaxis
     Route: 041
  5. PREDONINE [Concomitant]
     Active Substance: PREDNISOLONE
     Indication: Neuromyelitis optica spectrum disorder
     Route: 048
     Dates: start: 20201105, end: 20201202
  6. PREDONINE [Concomitant]
     Active Substance: PREDNISOLONE
     Dosage: 7.5MG/DAY
     Route: 048
     Dates: start: 20201203, end: 20210103
  7. PREDONINE [Concomitant]
     Active Substance: PREDNISOLONE
     Dosage: 5MG/DAY
     Route: 048
     Dates: start: 20210104, end: 20210131
  8. PREDONINE [Concomitant]
     Active Substance: PREDNISOLONE
     Dosage: 2.5 MG/DAY
     Route: 048
     Dates: start: 20210201, end: 20210228
  9. PREGABALIN [Concomitant]
     Active Substance: PREGABALIN
     Indication: Pain
     Dosage: 175 MILLIGRAM/DAY
     Route: 048
  10. MITOXANTRONE HYDROCHLORIDE [Concomitant]
     Active Substance: MITOXANTRONE HYDROCHLORIDE
  11. AZATHIOPRINE [Concomitant]
     Active Substance: AZATHIOPRINE
  12. TOZINAMERAN [Concomitant]
     Active Substance: TOZINAMERAN
     Dates: start: 202106
  13. TOZINAMERAN [Concomitant]
     Active Substance: TOZINAMERAN
     Dates: start: 202107
  14. TOZINAMERAN [Concomitant]
     Active Substance: TOZINAMERAN
     Dates: start: 202205
  15. TOZINAMERAN [Concomitant]
     Active Substance: TOZINAMERAN
     Dates: start: 202212
  16. TOZINAMERAN [Concomitant]
     Active Substance: TOZINAMERAN
     Dates: start: 202304

REACTIONS (2)
  - Cellulitis [Recovering/Resolving]
  - Off label use [Unknown]

NARRATIVE: CASE EVENT DATE: 20210525
